FAERS Safety Report 5560438-6 (Version None)
Quarter: 2007Q4

REPORT INFORMATION
  Report Type: 
  Country: None (occurrence: None)
  Receive Date: 20071215
  Receipt Date: 20071109
  Transmission Date: 20080405
  Serious: No
  Sender: FDA-Public Use
  Company Number: US-ABBOTT-07P-163-0424228-00

PATIENT
  Sex: Female
  Weight: 68.1 kg

DRUGS (2)
  1. HUMIRA [Suspect]
     Indication: PSORIATIC ARTHROPATHY
     Route: 058
     Dates: start: 20040101, end: 20060101
  2. HUMIRA [Suspect]
     Dates: start: 20060101

REACTIONS (6)
  - CONTUSION [None]
  - PRECANCEROUS SKIN LESION [None]
  - SCAR [None]
  - SKIN EXFOLIATION [None]
  - SKIN LACERATION [None]
  - STAPHYLOCOCCAL INFECTION [None]
